FAERS Safety Report 8381164-4 (Version None)
Quarter: 2012Q2

REPORT INFORMATION
  Report Type: 
  Country: None (occurrence: None)
  Receive Date: 20120523
  Receipt Date: 20120522
  Transmission Date: 20120825
  Serious: Yes (Other)
  Sender: FDA-Public Use
  Company Number: PHHY2012CA017279

PATIENT
  Sex: Female

DRUGS (1)
  1. OCTREOTIDE ACETATE [Suspect]
     Indication: METASTATIC CARCINOID TUMOUR
     Dosage: 50 MG, QMO
     Route: 030
     Dates: start: 20001115

REACTIONS (4)
  - HEARING IMPAIRED [None]
  - VISUAL IMPAIRMENT [None]
  - NASAL NEOPLASM [None]
  - TUMOUR PAIN [None]
